FAERS Safety Report 20412454 (Version 5)
Quarter: 2025Q2

REPORT INFORMATION
  Report Type: Report from Study
  Country: BR (occurrence: BR)
  Receive Date: 20220201
  Receipt Date: 20250609
  Transmission Date: 20250716
  Serious: Yes (Hospitalization, Other)
  Sender: TAKEDA
  Company Number: BR-TAKEDA-2022TUS006726

PATIENT
  Age: 7 Year
  Sex: Male
  Weight: 28.5 kg

DRUGS (9)
  1. IDURSULFASE [Suspect]
     Active Substance: IDURSULFASE
     Indication: Mucopolysaccharidosis II
     Dosage: 7 MILLILITER, 1/WEEK
     Dates: start: 20220916
  2. IDURSULFASE [Suspect]
     Active Substance: IDURSULFASE
  3. IDURSULFASE [Suspect]
     Active Substance: IDURSULFASE
     Dosage: 0.5 MILLIGRAM/KILOGRAM, 1/WEEK
  4. HYDROCORTISONE [Concomitant]
     Active Substance: HYDROCORTISONE
  5. DEXAMETHASONE [Concomitant]
     Active Substance: DEXAMETHASONE
     Dosage: 7 MILLILITER, QD
     Dates: start: 202306
  6. PROMETHAZINE [Concomitant]
     Active Substance: PROMETHAZINE HYDROCHLORIDE
     Dosage: UNK UNK, Q8HR
  7. PERICIAZINE [Concomitant]
     Active Substance: PERICIAZINE
  8. ARIPIPRAZOLE [Concomitant]
     Active Substance: ARIPIPRAZOLE
  9. PERICIAZINE [Concomitant]
     Active Substance: PERICIAZINE
     Dosage: UNK UNK, Q12H
     Dates: start: 20220101

REACTIONS (15)
  - General physical health deterioration [Unknown]
  - Pneumonia [Unknown]
  - Drug hypersensitivity [Unknown]
  - Poor venous access [Unknown]
  - Rash erythematous [Recovered/Resolved]
  - Eyelid oedema [Recovered/Resolved]
  - Skin plaque [Recovered/Resolved]
  - Eosinophil count decreased [Unknown]
  - Blood thyroid stimulating hormone decreased [Unknown]
  - High density lipoprotein decreased [Unknown]
  - Blood creatinine decreased [Unknown]
  - Blood uric acid decreased [Unknown]
  - Mean cell volume decreased [Unknown]
  - Monocyte count increased [Unknown]
  - Pruritus [Recovered/Resolved]

NARRATIVE: CASE EVENT DATE: 20230523
